FAERS Safety Report 15653556 (Version 1)
Quarter: 2018Q4

REPORT INFORMATION
  Report Type: Spontaneous
  Country: AT (occurrence: AT)
  Receive Date: 20181124
  Receipt Date: 20181124
  Transmission Date: 20190205
  Serious: Yes (Other)
  Sender: FDA-Public Use
  Company Number: AT-TEVA-558150ISR

PATIENT
  Age: 29 Year
  Sex: Female

DRUGS (5)
  1. CARBOPLATIN (AUC5) [Suspect]
     Active Substance: CARBOPLATIN
     Indication: LUNG NEOPLASM MALIGNANT
     Dosage: ONE CYCLE
     Dates: start: 20120606, end: 2012
  2. CABERGOLIN [Concomitant]
     Active Substance: CABERGOLINE
     Indication: LACTATION INHIBITION THERAPY
     Dates: start: 201207
  3. PREDNISOLON [Concomitant]
     Active Substance: PREDNISOLONE
     Indication: LUNG NEOPLASM MALIGNANT
     Dates: start: 2012, end: 2012
  4. DOCETAXEL. [Suspect]
     Active Substance: DOCETAXEL
     Indication: LUNG NEOPLASM MALIGNANT
     Dosage: ONE CYCLE
     Dates: start: 20120606, end: 2012
  5. GEFITINIB. [Suspect]
     Active Substance: GEFITINIB
     Dosage: 250 MILLIGRAM DAILY;
     Route: 048
     Dates: start: 20120704

REACTIONS (4)
  - Normal newborn [Unknown]
  - Spinal cord compression [Recovering/Resolving]
  - Metastasis [Recovering/Resolving]
  - Maternal exposure during pregnancy [Unknown]

NARRATIVE: CASE EVENT DATE: 20120704
